FAERS Safety Report 9117871 (Version 1)
Quarter: 2013Q1

REPORT INFORMATION
  Report Type: Spontaneous
  Country: CH (occurrence: CH)
  Receive Date: 20130225
  Receipt Date: 20130225
  Transmission Date: 20140127
  Serious: Yes (Hospitalization)
  Sender: FDA-Public Use
  Company Number: CH-009507513-1302CHE009455

PATIENT
  Age: 84 Year
  Sex: Female
  Weight: 47 kg

DRUGS (5)
  1. REMERON [Suspect]
     Indication: DEPRESSION
     Dosage: 7.5 MG, QD
     Route: 048
     Dates: start: 20130104
  2. NEXIUM [Suspect]
     Dosage: 20 MG, QD
     Route: 048
     Dates: end: 20130114
  3. DE URSIL [Concomitant]
     Indication: BILIARY CIRRHOSIS
     Dosage: 400 MG, QD
     Route: 048
  4. DAFALGAN [Concomitant]
     Indication: NECK PAIN
     Dosage: 1 G, TID
     Route: 048
  5. ASPIRIN CARDIO [Concomitant]
     Dosage: 100 MG, QD
     Route: 048

REACTIONS (1)
  - Pancytopenia [Recovering/Resolving]
